FAERS Safety Report 9999292 (Version 1)
Quarter: 2014Q1

REPORT INFORMATION
  Report Type: Spontaneous
  Country: US (occurrence: None)
  Receive Date: 20140311
  Receipt Date: 20140311
  Transmission Date: 20141002
  Serious: Yes (Other)
  Sender: FDA-Public Use
  Company Number: None

PATIENT
  Age: 8 Year
  Sex: Male
  Weight: 111.13 kg

DRUGS (1)
  1. DDAVP [Suspect]
     Dosage: 1SPRAY AT BEDTIME INHALATION
     Route: 055

REACTIONS (3)
  - Hypertension [None]
  - Breast enlargement [None]
  - Hair growth abnormal [None]
